FAERS Safety Report 8822549 (Version 1)
Quarter: 2012Q4

REPORT INFORMATION
  Report Type: 
  Country: US (occurrence: US)
  Receive Date: 20121003
  Receipt Date: 20121003
  Transmission Date: 20130627
  Serious: No
  Sender: FDA-Public Use
  Company Number: US-VERTEX PHARMACEUTICAL INC.-2012-020911

PATIENT
  Age: 46 Year
  Sex: Female
  Weight: 63 kg

DRUGS (5)
  1. INCIVEK [Suspect]
     Indication: HEPATITIS C
     Dosage: 750 mg, tid
     Route: 048
     Dates: start: 20120728, end: 20120905
  2. RIBAVIRIN [Suspect]
     Indication: HEPATITIS C
     Dosage: 400 mg, bid
     Dates: start: 20120728
  3. RIBAVIRIN [Suspect]
     Dosage: 200 mg, bid
  4. RIBAVIRIN [Suspect]
     Dosage: 400 mg AM 200 mg PM
     Dates: end: 20120905
  5. PEGASYS [Suspect]
     Indication: HEPATITIS C
     Dosage: 135 ?g, UNK
     Route: 058
     Dates: start: 20120728, end: 20120905

REACTIONS (1)
  - Drug ineffective [Unknown]
